FAERS Safety Report 8951134 (Version 1)
Quarter: 2012Q4

REPORT INFORMATION
  Report Type: 
  Country: US (occurrence: US)
  Receive Date: 20121207
  Receipt Date: 20121207
  Transmission Date: 20130627
  Serious: Yes (Hospitalization)
  Sender: FDA-Public Use
  Company Number: US-SANOFI-AVENTIS-2012SA087647

PATIENT
  Age: 68 Year
  Sex: Female

DRUGS (4)
  1. OXALIPLATIN [Suspect]
     Indication: METASTATIC COLORECTAL CANCER
     Dosage: infusion
     Route: 065
     Dates: start: 2011
  2. OXALIPLATIN [Suspect]
     Indication: METASTATIC COLORECTAL CANCER
     Dosage: infusion
     Route: 065
     Dates: start: 2011
  3. LEUCOVORIN [Concomitant]
     Indication: METASTATIC COLORECTAL CANCER
     Dates: start: 2011
  4. FLUOROURACIL [Concomitant]
     Indication: METASTATIC COLORECTAL CANCER
     Dates: start: 2011

REACTIONS (19)
  - Thrombotic thrombocytopenic purpura [Recovered/Resolved]
  - Jaundice [Recovered/Resolved]
  - Confusional state [Recovered/Resolved]
  - Haemorrhage [Recovered/Resolved]
  - Body temperature increased [Recovered/Resolved]
  - Heart rate increased [Recovered/Resolved]
  - Blood pressure increased [Recovered/Resolved]
  - Respiratory rate increased [Recovered/Resolved]
  - Anaemia [Recovered/Resolved]
  - Thrombocytopenia [Recovered/Resolved]
  - Haemolysis [Recovered/Resolved]
  - Chest pain [Recovered/Resolved]
  - Aspartate aminotransferase increased [Recovered/Resolved]
  - Blood bilirubin increased [Recovered/Resolved]
  - Blood lactate dehydrogenase increased [Recovered/Resolved]
  - Haptoglobin decreased [Recovered/Resolved]
  - Alanine aminotransferase increased [Recovered/Resolved]
  - Renal failure [Recovered/Resolved]
  - Blood creatinine increased [Recovered/Resolved]
